FAERS Safety Report 21159324 (Version 1)
Quarter: 2022Q3

REPORT INFORMATION
  Report Type: Spontaneous
  Country: CA (occurrence: CA)
  Receive Date: 20220802
  Receipt Date: 20220802
  Transmission Date: 20221026
  Serious: Yes (Other)
  Sender: FDA-Public Use
  Company Number: CA-JNJFOC-20220754882

PATIENT
  Age: 55 Year
  Sex: Male

DRUGS (3)
  1. REMICADE [Suspect]
     Active Substance: INFLIXIMAB
     Indication: Crohn^s disease
     Route: 042
  2. METRONIDAZOLE [Concomitant]
     Active Substance: METRONIDAZOLE
  3. PANTOPRAZOLE [Concomitant]
     Active Substance: PANTOPRAZOLE

REACTIONS (6)
  - Feeding disorder [Unknown]
  - Muscle spasms [Unknown]
  - Weight decreased [Unknown]
  - Frequent bowel movements [Unknown]
  - Condition aggravated [Unknown]
  - Arthralgia [Unknown]
